FAERS Safety Report 16569365 (Version 1)
Quarter: 2019Q3

REPORT INFORMATION
  Report Type: Spontaneous
  Country: US (occurrence: US)
  Receive Date: 20190715
  Receipt Date: 20190715
  Transmission Date: 20191004
  Serious: No
  Sender: FDA-Public Use
  Company Number: US-BION-008058

PATIENT
  Sex: Male

DRUGS (1)
  1. CALCITRIOL UNKNOWN CAPSULE 0.25 MCG [Suspect]
     Active Substance: CALCITRIOL
     Indication: PRODUCT USED FOR UNKNOWN INDICATION
     Dosage: STRENGTH: 0.25 MCG

REACTIONS (1)
  - Hypersensitivity [Unknown]
